APPROVED DRUG PRODUCT: OPTIRAY 300
Active Ingredient: IOVERSOL
Strength: 64%
Dosage Form/Route: INJECTABLE;INJECTION
Application: N020923 | Product #004
Applicant: LIEBEL-FLARSHEIM CO LLC
Approved: May 13, 1999 | RLD: Yes | RS: No | Type: DISCN